FAERS Safety Report 6791167-9 (Version None)
Quarter: 2010Q2

REPORT INFORMATION
  Report Type: 
  Country: None (occurrence: None)
  Receive Date: 20100624
  Receipt Date: 20100617
  Transmission Date: 20101027
  Serious: Yes (Other)
  Sender: FDA-Public Use
  Company Number: GB-ABBOTT-10P-167-0635610-00

PATIENT
  Sex: Female
  Weight: 73 kg

DRUGS (3)
  1. HUMIRA [Suspect]
     Indication: PSORIASIS
     Dosage: LOADING DOSE (1ST INJECTION)
     Route: 058
     Dates: start: 20100311
  2. HUMIRA [Suspect]
     Route: 058
  3. CYCLOSPORINE [Concomitant]
     Indication: PSORIASIS
     Route: 048

REACTIONS (3)
  - INFLUENZA LIKE ILLNESS [None]
  - PRURITUS GENERALISED [None]
  - PSORIATIC ARTHROPATHY [None]
